FAERS Safety Report 22119234 (Version 1)
Quarter: 2023Q1

REPORT INFORMATION
  Report Type: Spontaneous
  Country: US (occurrence: US)
  Receive Date: 20230321
  Receipt Date: 20230321
  Transmission Date: 20230418
  Serious: No
  Sender: FDA-Public Use
  Company Number: US-TARO PHARMACEUTICALS USA INC.-2023TAR00012

PATIENT

DRUGS (1)
  1. IVERMECTIN [Suspect]
     Active Substance: IVERMECTIN
     Indication: Lice infestation
     Dosage: UNK, SUPPOSED TO BE ONCE, USED 2 MORE TIMES, SCALP
     Route: 061

REACTIONS (2)
  - Drug ineffective [Unknown]
  - Product use issue [Unknown]
